FAERS Safety Report 8268843-4 (Version None)
Quarter: 2012Q2

REPORT INFORMATION
  Report Type: 
  Country: None (occurrence: None)
  Receive Date: 20120409
  Receipt Date: 20120409
  Transmission Date: 20120825
  Serious: Yes (Hospitalization, Disabling)
  Sender: FDA-Public Use
  Company Number: None

PATIENT
  Age: 29 Year
  Sex: Female
  Weight: 104.32 kg

DRUGS (1)
  1. CYMBALTA [Suspect]
     Indication: NEURALGIA
     Dosage: 30 MG
     Route: 048
     Dates: start: 20110720, end: 20111231

REACTIONS (7)
  - EMOTIONAL DISORDER [None]
  - HEADACHE [None]
  - SUICIDAL IDEATION [None]
  - APATHY [None]
  - PRODUCT SUBSTITUTION ISSUE [None]
  - WITHDRAWAL SYNDROME [None]
  - ALCOHOL USE [None]
